FAERS Safety Report 18078408 (Version 1)
Quarter: 2020Q3

REPORT INFORMATION
  Report Type: Spontaneous
  Country: US (occurrence: US)
  Receive Date: 20200727
  Receipt Date: 20200727
  Transmission Date: 20201103
  Serious: Yes (Hospitalization)
  Sender: FDA-Public Use
  Company Number: None

PATIENT
  Age: 68 Year
  Sex: Male
  Weight: 97.4 kg

DRUGS (19)
  1. ENOXAPARIN 40MG SUB Q DAILY [Concomitant]
     Dates: start: 20200714, end: 20200715
  2. METHYLPREDNISOLONE 60MG IVP Q6H [Concomitant]
     Dates: start: 20200713, end: 20200721
  3. ACETAMINOPHEN AS NEEDED [Concomitant]
     Dates: start: 20200712, end: 20200717
  4. PANTOPRAZOLE 40MG IV DAILY [Concomitant]
     Dates: start: 20200714, end: 20200722
  5. CHOLECALCIFEROL 1,000UNITS DAILY [Concomitant]
     Dates: start: 20200713, end: 20200717
  6. DOXYCYCLINE 100MG IVPB TWICE DAILY [Concomitant]
     Dates: start: 20200715, end: 20200721
  7. AZITHROMYCIN 500MG IV DAILY [Concomitant]
     Dates: start: 20200713, end: 20200714
  8. BUDESONIDE NEB [Concomitant]
     Dates: start: 20200713, end: 20200722
  9. FENTANYL INFUSION [Concomitant]
     Active Substance: FENTANYL
     Dates: start: 20200714, end: 20200722
  10. MIDAZOLAM INFUSION [Concomitant]
     Active Substance: MIDAZOLAM HYDROCHLORIDE
     Dates: start: 20200714, end: 20200721
  11. ALBUTEROL/IPRATROPIUM NEB FOUR TIMES DAILY [Concomitant]
     Dates: start: 20200712, end: 20200722
  12. ASCORBIC ACID 500MG ORAL THREE TIMES DAILY [Concomitant]
     Dates: start: 20200712, end: 20200716
  13. CEFTRIAXONE 2GM IVPB DAILY [Concomitant]
     Dates: start: 20200713, end: 20200721
  14. NOREPINEPHRINE INFUSION [Concomitant]
     Dates: start: 20200714, end: 20200715
  15. THIAMINE 200MG IV DAILY [Concomitant]
     Dates: start: 20200713, end: 20200722
  16. FUROSEMIDE 40MG IV TWICE DAILY [Concomitant]
     Dates: start: 20200713, end: 20200713
  17. REMDESIVIR. [Suspect]
     Active Substance: REMDESIVIR
     Indication: SARS-COV-2 TEST POSITIVE
     Dosage: ?          OTHER FREQUENCY:ONCE;?
     Route: 042
     Dates: start: 20200714, end: 20200715
  18. VECURONIUM INFUSION [Concomitant]
     Dates: start: 20200714, end: 20200715
  19. ZINC SULFATE 220MG ORAL TWICE DAILY [Concomitant]
     Dates: start: 20200712, end: 20200717

REACTIONS (1)
  - Blood creatinine increased [None]

NARRATIVE: CASE EVENT DATE: 20200716
